FAERS Safety Report 7141379-X (Version None)
Quarter: 2010Q4

REPORT INFORMATION
  Report Type: 
  Country: None (occurrence: None)
  Receive Date: 20101207
  Receipt Date: 20101129
  Transmission Date: 20110411
  Serious: Yes (Hospitalization)
  Sender: FDA-Public Use
  Company Number: US-ELI_LILLY_AND_COMPANY-US201011002197

PATIENT
  Sex: Female
  Weight: 108.84 kg

DRUGS (9)
  1. BYETTA [Suspect]
     Indication: TYPE 2 DIABETES MELLITUS
     Dosage: 10 UG, 2/D
     Route: 058
     Dates: end: 20100707
  2. METFORMIN [Concomitant]
     Indication: TYPE 2 DIABETES MELLITUS
     Dosage: 500 MG, DAILY (1/D)
     Route: 048
  3. ACTOS [Concomitant]
     Indication: PRODUCT USED FOR UNKNOWN INDICATION
     Dosage: 30 MG/KG, DAILY (1/D)
     Route: 048
  4. SIMVASTATIN [Concomitant]
     Indication: PRODUCT USED FOR UNKNOWN INDICATION
     Dosage: 40 MG, DAILY (1/D)
     Route: 048
  5. NEXIUM [Concomitant]
     Indication: BURNING SENSATION
     Dosage: 40 MG, DAILY (1/D)
     Route: 048
  6. VESICARE [Concomitant]
     Indication: PRODUCT USED FOR UNKNOWN INDICATION
     Dosage: 5 MG, DAILY (1/D)
     Route: 048
  7. PAROXETINE [Concomitant]
     Indication: DEPRESSION
     Dosage: 37.5 MG, DAILY (1/D)
     Route: 048
  8. TOPROL-XL [Concomitant]
     Indication: PRODUCT USED FOR UNKNOWN INDICATION
     Dosage: 25 MG, DAILY (1/D)
     Route: 048
  9. VITAMIN D [Concomitant]
     Indication: VITAMIN D DECREASED
     Dosage: 2000 U, 2/D
     Route: 048

REACTIONS (1)
  - ABSCESS [None]
